FAERS Safety Report 12376400 (Version 2)
Quarter: 2016Q3

REPORT INFORMATION
  Report Type: Spontaneous
  Country: US (occurrence: US)
  Receive Date: 20160517
  Receipt Date: 20160901
  Transmission Date: 20161109
  Serious: No
  Sender: FDA-Public Use
  Company Number: US-RELYPSA-RLY2016000123

PATIENT
  Age: 83 Year
  Sex: Female

DRUGS (13)
  1. COD LIVER OIL [Concomitant]
     Active Substance: COD LIVER OIL
  2. AMARYL [Concomitant]
     Active Substance: GLIMEPIRIDE
  3. ACETAMINOPHEN. [Concomitant]
     Active Substance: ACETAMINOPHEN
  4. SENNA LAXATIVE [Concomitant]
     Active Substance: SENNOSIDES
  5. EMLA [Concomitant]
     Active Substance: LIDOCAINE\PRILOCAINE
  6. RENVELA [Concomitant]
     Active Substance: SEVELAMER CARBONATE
  7. ISOSORBIDE MONONITRATE (ER) [Concomitant]
  8. MIDODRINE HCL [Concomitant]
     Active Substance: MIDODRINE HYDROCHLORIDE
  9. NEPHROCAPS                         /01801401/ [Concomitant]
  10. ASPIRIN. [Concomitant]
     Active Substance: ASPIRIN
  11. VELTASSA [Suspect]
     Active Substance: PATIROMER
     Indication: HYPERKALAEMIA
     Dosage: 16.8 GM, QD
     Route: 048
     Dates: start: 20160211
  12. PREVACID [Concomitant]
     Active Substance: LANSOPRAZOLE
  13. ERGOCALCIFEROL. [Concomitant]
     Active Substance: ERGOCALCIFEROL

REACTIONS (1)
  - Flatulence [Unknown]

NARRATIVE: CASE EVENT DATE: 201602
